FAERS Safety Report 6779747-8 (Version None)
Quarter: 2010Q2

REPORT INFORMATION
  Report Type: 
  Country: None (occurrence: None)
  Receive Date: 20100618
  Receipt Date: 20100609
  Transmission Date: 20101027
  Serious: Yes (Hospitalization)
  Sender: FDA-Public Use
  Company Number: US-JNJFOC-20100603650

PATIENT
  Sex: Male
  Weight: 113.4 kg

DRUGS (10)
  1. SIMPONI [Suspect]
     Indication: PSORIATIC ARTHROPATHY
     Route: 058
  2. NOVOLOG [Concomitant]
     Indication: DIABETES MELLITUS
  3. LANTUS [Concomitant]
     Indication: DIABETES MELLITUS
  4. COREG [Concomitant]
     Indication: HYPERTENSION
  5. HYZAAR [Concomitant]
     Indication: HYPERTENSION
  6. KLOR-CON [Concomitant]
  7. SULFASALAZINE [Concomitant]
     Indication: PSORIATIC ARTHROPATHY
  8. LASIX [Concomitant]
     Indication: HYPERTENSION
  9. SIMVASTATIN [Concomitant]
     Indication: HYPERCHOLESTEROLAEMIA
  10. NEFAZODONE HCL [Concomitant]

REACTIONS (3)
  - BRONCHITIS [None]
  - DRUG EFFECT DECREASED [None]
  - SINUSITIS [None]
